FAERS Safety Report 26100404 (Version 1)
Quarter: 2025Q4

REPORT INFORMATION
  Report Type: Spontaneous
  Country: IN (occurrence: IN)
  Receive Date: 20251128
  Receipt Date: 20251128
  Transmission Date: 20260119
  Serious: Yes (Other)
  Sender: ALKEM
  Company Number: IN-ALKEM LABORATORIES LIMITED-IN-ALKEM-2025-12834

PATIENT
  Age: 26 Year
  Sex: Female
  Weight: 50 kg

DRUGS (1)
  1. LIDOCAINE [Suspect]
     Active Substance: LIDOCAINE
     Indication: Pain management
     Dosage: 20 MILLIGRAM (INFILTRATION) (INJECTION)
     Route: 058

REACTIONS (3)
  - Neurotoxicity [Recovering/Resolving]
  - Local anaesthetic systemic toxicity [Recovering/Resolving]
  - Seizure [Recovering/Resolving]
